FAERS Safety Report 21066032 (Version 5)
Quarter: 2023Q4

REPORT INFORMATION
  Report Type: Spontaneous
  Country: US (occurrence: US)
  Receive Date: 20220711
  Receipt Date: 20231204
  Transmission Date: 20240110
  Serious: No
  Sender: FDA-Public Use
  Company Number: US-PFIZER INC-PV202200018593

PATIENT
  Age: 87 Year
  Sex: Female

DRUGS (1)
  1. IBRANCE [Suspect]
     Active Substance: PALBOCICLIB
     Indication: Breast cancer metastatic
     Dosage: TAKE 1 TABLET BY MOUTH DAILY FOR 21 DAYS AND THEN 7 DAYS OFF
     Route: 048

REACTIONS (2)
  - Neoplasm progression [Unknown]
  - Blood test abnormal [Unknown]
